FAERS Safety Report 6482822-9 (Version None)
Quarter: 2009Q4

REPORT INFORMATION
  Report Type: 
  Country: None (occurrence: None)
  Receive Date: 20091209
  Receipt Date: 20091130
  Transmission Date: 20100525
  Serious: Yes (Other)
  Sender: FDA-Public Use
  Company Number: US-JNJFOC-20091108220

PATIENT
  Sex: Male

DRUGS (1)
  1. LEVAQUIN [Suspect]
     Indication: PROSTATITIS
     Route: 065

REACTIONS (4)
  - MYOPATHY [None]
  - NECK PAIN [None]
  - PHOTOPHOBIA [None]
  - VERTIGO [None]
